FAERS Safety Report 20164241 (Version 6)
Quarter: 2022Q1

REPORT INFORMATION
  Report Type: Report from Study
  Country: US (occurrence: US)
  Receive Date: 20211209
  Receipt Date: 20220329
  Transmission Date: 20220423
  Serious: Yes (Hospitalization)
  Sender: FDA-Public Use
  Company Number: US-INSMED, INC.-2021-09509-US

PATIENT
  Sex: Female

DRUGS (4)
  1. ARIKAYCE [Suspect]
     Active Substance: AMIKACIN
     Indication: Product used for unknown indication
     Dosage: 590 MILLIGRAM, QD
     Route: 055
     Dates: start: 20210913, end: 2021
  2. ARIKAYCE [Suspect]
     Active Substance: AMIKACIN
     Dosage: 590 MILLIGRAM, BID
     Route: 055
     Dates: start: 2021, end: 2021
  3. ARIKAYCE [Suspect]
     Active Substance: AMIKACIN
     Dosage: 590 MILLIGRAM, QD
     Route: 055
     Dates: start: 202112
  4. ARIKAYCE [Suspect]
     Active Substance: AMIKACIN
     Dosage: 590 MILLIGRAM, QD
     Route: 055
     Dates: end: 202203

REACTIONS (23)
  - Lung disorder [Unknown]
  - Hospitalisation [Unknown]
  - Dyspnoea [Unknown]
  - Fall [Not Recovered/Not Resolved]
  - Eating disorder [Unknown]
  - Productive cough [Unknown]
  - Weight decreased [Unknown]
  - Fatigue [Not Recovered/Not Resolved]
  - Nausea [Not Recovered/Not Resolved]
  - Malaise [Not Recovered/Not Resolved]
  - Dizziness [Not Recovered/Not Resolved]
  - Diarrhoea [Not Recovered/Not Resolved]
  - Dysphonia [Unknown]
  - Cough [Not Recovered/Not Resolved]
  - Illness [Unknown]
  - Dyspnoea [Unknown]
  - Product dose omission issue [Unknown]
  - Product supply issue [Unknown]
  - Insurance issue [Unknown]
  - Therapy interrupted [Unknown]
  - Off label use [Unknown]
  - Wrong technique in product usage process [Unknown]
  - Drug ineffective [Unknown]

NARRATIVE: CASE EVENT DATE: 20210101
